FAERS Safety Report 16783333 (Version 1)
Quarter: 2019Q3

REPORT INFORMATION
  Report Type: Spontaneous
  Country: GB (occurrence: GB)
  Receive Date: 20190907
  Receipt Date: 20190907
  Transmission Date: 20191005
  Serious: Yes (Other)
  Sender: FDA-Public Use
  Company Number: GB-TEVA-2019-GB-1102527

PATIENT
  Age: 64 Year
  Sex: Female
  Weight: 78 kg

DRUGS (27)
  1. GLUCOSE [Concomitant]
     Active Substance: DEXTROSE
     Dosage: USE AS DIRECTED
     Dates: start: 20190213
  2. CLOTRIMAZOLE. [Concomitant]
     Active Substance: CLOTRIMAZOLE
     Dosage: INSERT AT NIGHT. 1 DF
     Dates: start: 20190709, end: 20190710
  3. ARIPIPRAZOLE. [Concomitant]
     Active Substance: ARIPIPRAZOLE
     Dosage: 1 DF
     Dates: start: 20190624
  4. LAMOTRIGINE. [Concomitant]
     Active Substance: LAMOTRIGINE
     Dosage: AT NIGHT, 2 DF
     Dates: start: 20190327
  5. DILTIAZEM HYDROCHLORIDE. [Concomitant]
     Active Substance: DILTIAZEM HYDROCHLORIDE
     Dosage: 1 DF
     Dates: start: 20190327
  6. ROSUVASTATIN. [Concomitant]
     Active Substance: ROSUVASTATIN
     Dosage: 1 DF
     Dates: start: 20190327
  7. METFORMIN [Concomitant]
     Active Substance: METFORMIN HYDROCHLORIDE
     Dosage: 1 DF
     Dates: start: 20190327
  8. VENTOLIN [Concomitant]
     Active Substance: ALBUTEROL SULFATE
     Dosage: 2 DF
     Route: 055
     Dates: start: 20190213
  9. FLUTICASONE PROPIONATE. [Concomitant]
     Active Substance: FLUTICASONE PROPIONATE
     Dosage: 2 DF
     Route: 045
     Dates: start: 20190213
  10. HYLO-FORTE [Concomitant]
     Active Substance: HYALURONATE SODIUM
     Dosage: USE AS DIRECTED
     Dates: start: 20190213
  11. CETIRIZINE [Concomitant]
     Active Substance: CETIRIZINE HYDROCHLORIDE
     Dosage: TAKE ONE, 1 DF
     Dates: start: 20190213
  12. ESTRADIOL. [Concomitant]
     Active Substance: ESTRADIOL
     Dosage: INSERT INTO THE VAGINA EACH EVENING..., 1 DF
     Route: 067
     Dates: start: 20190213
  13. TRAMADOL. [Concomitant]
     Active Substance: TRAMADOL
     Dosage: TAKE 1 OR 2 UP TO FOUR TIMES DAILY
     Dates: start: 20190724, end: 20190807
  14. DUORESP SPIROMAX [Concomitant]
     Active Substance: BUDESONIDE\FORMOTEROL
     Dosage: PUFFS MORNING AND NIGHT, 4 DF
     Route: 055
     Dates: start: 20190213
  15. ZOPICLONE [Concomitant]
     Active Substance: ZOPICLONE
     Dosage: AT NIGHT, 1 DF
     Dates: start: 20190327
  16. REBOXETINE [Concomitant]
     Active Substance: REBOXETINE
     Dosage: 2 AT MORNING 1 AT NOON
     Dates: start: 20190327
  17. DOXYCYCLINE. [Concomitant]
     Active Substance: DOXYCYCLINE
     Dosage: TWO NOW THEN ONE DAILY
     Dates: start: 20190524, end: 20190531
  18. OZEMPIC [Concomitant]
     Active Substance: SEMAGLUTIDE
     Dosage: ON SUNDAY, 1 DF
     Dates: start: 20190508
  19. CANDESARTAN. [Concomitant]
     Active Substance: CANDESARTAN
     Dosage: 1 DF
     Dates: start: 20190327
  20. NAPROXEN. [Concomitant]
     Active Substance: NAPROXEN
     Dosage: TAKE ONE OR TWO UP TO TWICE A DAY
     Dates: start: 20190725, end: 20190804
  21. LORAZEPAM. [Concomitant]
     Active Substance: LORAZEPAM
     Dosage: AT NIGHT, 1 DF
     Dates: start: 20190327
  22. NITROFURANTOIN. [Suspect]
     Active Substance: NITROFURANTOIN
     Dosage: 2 DF
     Dates: start: 20190617, end: 20190624
  23. RANITIDINE. [Concomitant]
     Active Substance: RANITIDINE
     Dosage: 2 DF
     Dates: start: 20190327
  24. PREGABALIN. [Concomitant]
     Active Substance: PREGABALIN
     Dosage: 2 DF
     Dates: start: 20190327
  25. PARACETAMOL [Concomitant]
     Active Substance: ACETAMINOPHEN
     Dosage: 8 DF
     Dates: start: 20190213
  26. ADCAL [Concomitant]
     Dosage: 1 DF
     Dates: start: 20190213
  27. TRIMETHOPRIM. [Concomitant]
     Active Substance: TRIMETHOPRIM
     Dosage: 2 DF
     Dates: start: 20190731, end: 20190807

REACTIONS (1)
  - Abdominal pain upper [Recovered/Resolved]

NARRATIVE: CASE EVENT DATE: 20190809
